FAERS Safety Report 15891807 (Version 1)
Quarter: 2019Q1

REPORT INFORMATION
  Report Type: Spontaneous
  Country: US (occurrence: US)
  Receive Date: 20190130
  Receipt Date: 20190130
  Transmission Date: 20190417
  Serious: No
  Sender: FDA-Public Use
  Company Number: US-GILEAD-2019-0387635

PATIENT
  Age: 72 Year
  Sex: Female

DRUGS (4)
  1. MYRBETRIC [Concomitant]
  2. LAMICTAL [Concomitant]
     Active Substance: LAMOTRIGINE
  3. HARVONI [Suspect]
     Active Substance: LEDIPASVIR\SOFOSBUVIR
     Indication: CHRONIC HEPATITIS C
     Route: 065
  4. FOSAMAX [Concomitant]
     Active Substance: ALENDRONATE SODIUM

REACTIONS (1)
  - Hypoglycaemia [Unknown]
